FAERS Safety Report 16186577 (Version 3)
Quarter: 2020Q1

REPORT INFORMATION
  Report Type: Spontaneous
  Country: FR (occurrence: FR)
  Receive Date: 20190411
  Receipt Date: 20200109
  Transmission Date: 20200409
  Serious: Yes (Hospitalization)
  Sender: FDA-Public Use
  Company Number: PHHY2019FR079449

PATIENT
  Age: 95 Year
  Sex: Male

DRUGS (10)
  1. ENANTONE LP [Suspect]
     Active Substance: LEUPROLIDE ACETATE
     Dosage: UNK
     Route: 048
     Dates: end: 20190216
  2. BICALUTAMIDE. [Suspect]
     Active Substance: BICALUTAMIDE
     Indication: PRODUCT USED FOR UNKNOWN INDICATION
     Dosage: 50 MG, QD
     Route: 048
  3. IRBESARTAN. [Suspect]
     Active Substance: IRBESARTAN
     Indication: HYPERTENSION
     Dosage: 75 MG, QD
     Route: 048
  4. CALCIDOSE VITAMINE D [Suspect]
     Active Substance: CALCIUM\CHOLECALCIFEROL
     Indication: HYPOVITAMINOSIS
     Dosage: 2 DF, QD
     Route: 048
  5. CHONDROITIN [Suspect]
     Active Substance: CHONDROITIN
     Indication: PRODUCT USED FOR UNKNOWN INDICATION
     Dosage: 500 MG, QD
     Route: 048
  6. ENANTONE LP [Suspect]
     Active Substance: LEUPROLIDE ACETATE
     Indication: PRODUCT USED FOR UNKNOWN INDICATION
     Dosage: UNK
     Route: 048
  7. DOLIPRANE [Suspect]
     Active Substance: ACETAMINOPHEN
     Indication: PAIN
     Dosage: 1 DF, QD
     Route: 048
  8. DOLIPRANE [Suspect]
     Active Substance: ACETAMINOPHEN
     Dosage: 3 DF, QD
     Route: 048
  9. ELIQUIS [Suspect]
     Active Substance: APIXABAN
     Indication: CARDIOMYOPATHY
     Dosage: 10 MG, QD
     Route: 048
     Dates: start: 20190225, end: 20190312
  10. GINKGO [Concomitant]
     Active Substance: GINKGO
     Indication: PRODUCT USED FOR UNKNOWN INDICATION
     Dosage: UNK
     Route: 065

REACTIONS (1)
  - Thrombocytopenia [Not Recovered/Not Resolved]

NARRATIVE: CASE EVENT DATE: 20190306
